FAERS Safety Report 9892085 (Version 2)
Quarter: 2014Q2

REPORT INFORMATION
  Report Type: Report from Study
  Country: BR (occurrence: BR)
  Receive Date: 20140212
  Receipt Date: 20140416
  Transmission Date: 20141212
  Serious: Yes (Hospitalization, Other)
  Sender: FDA-Public Use
  Company Number: PHHY2014BR016808

PATIENT
  Sex: Female
  Weight: 109 kg

DRUGS (5)
  1. DIOVAN [Suspect]
     Indication: HYPERTENSION
     Dosage: 1 DF(320MG), QD(IN THE MORNING)
     Route: 048
  2. DIOVAN [Suspect]
     Indication: ARRHYTHMIA
  3. SELOZOK [Concomitant]
     Indication: CARDIAC DISORDER
     Dosage: 20 MG, UNK
  4. EUTIROX [Concomitant]
     Indication: HYPOTHYROIDISM
     Dosage: UNK UKN, UNK
  5. ATENSINA [Concomitant]
     Indication: CARDIAC DISORDER
     Dosage: 0.100 MG, UNK

REACTIONS (7)
  - Cardiac disorder [Recovering/Resolving]
  - Blood glucose increased [Recovering/Resolving]
  - Diabetes mellitus inadequate control [Recovering/Resolving]
  - Atrial fibrillation [Unknown]
  - Heart rate irregular [Unknown]
  - Palpitations [Unknown]
  - Electric shock [Unknown]
